FAERS Safety Report 13703568 (Version 1)
Quarter: 2017Q2

REPORT INFORMATION
  Report Type: Spontaneous
  Country: US (occurrence: US)
  Receive Date: 20170629
  Receipt Date: 20170629
  Transmission Date: 20170830
  Serious: No
  Sender: FDA-Public Use
  Company Number: US-AVEDRO-AVE-2017-0085-AE

PATIENT
  Sex: Female

DRUGS (8)
  1. PHOTREXA VISCOUS [Suspect]
     Active Substance: RIBOFLAVIN 5^-PHOSPHATE SODIUM
     Dosage: 1 DROP EVERY 2-3 MINUTES FOR 12 DROPS
     Route: 047
     Dates: start: 20170313, end: 20170313
  2. KXL SYSTEM [Suspect]
     Active Substance: DEVICE
     Indication: PRODUCT USED FOR UNKNOWN INDICATION
     Route: 047
     Dates: start: 20170313, end: 20170313
  3. BSS [Suspect]
     Active Substance: CALCIUM CHLORIDE\MAGNESIUM CHLORIDE\POTASSIUM CHLORIDE\SODIUM ACETATE\SODIUM CHLORIDE\SODIUM CITRATE
     Indication: PRODUCT USED FOR UNKNOWN INDICATION
     Dosage: 10 DROPS OF PHOTREXA WITH STERILE BSS DROPS FOR A TOTAL OF 5 MINUTES
     Route: 047
     Dates: start: 20170313, end: 20170313
  4. PHOTREXA VISCOUS [Suspect]
     Active Substance: RIBOFLAVIN 5^-PHOSPHATE SODIUM
     Dosage: 1 DROP EVERY 2 MINUTES ALTERNATING WITH PHOTREXA FOR A TOTAL OF 8 DROPS OF PHOTREXA VISCOUS AND 7 DR
     Route: 047
     Dates: start: 20170313, end: 20170313
  5. PHOTREXA [Suspect]
     Active Substance: RIBOFLAVIN 5^-PHOSPHATE SODIUM
     Dosage: 1 DROP EVERY 2 MINUTES ALTERNATING WITH PHOTREXA VISCOUS FOR A TOTAL OF 7 DROPS OF PHOTREXA AND 8 DR
     Route: 047
     Dates: start: 20170313, end: 20170313
  6. PHOTREXA VISCOUS [Suspect]
     Active Substance: RIBOFLAVIN 5^-PHOSPHATE SODIUM
     Indication: PRODUCT USED FOR UNKNOWN INDICATION
     Dosage: 1 DROP EVERY 2 MINUTES FOR A TOTAL OF 15 DROPS
     Route: 047
     Dates: start: 20170313, end: 20170313
  7. TOPICAL ANESTHETIC [Concomitant]
     Active Substance: BENZOCAINE
     Indication: ANAESTHESIA
     Route: 047
     Dates: start: 20170313, end: 20170313
  8. PHOTREXA [Suspect]
     Active Substance: RIBOFLAVIN 5^-PHOSPHATE SODIUM
     Indication: PRODUCT USED FOR UNKNOWN INDICATION
     Dosage: 10 DROPS WITH STERILE BSS DROPS FOR A TOTAL OF 5 MINUTES
     Route: 047
     Dates: start: 20170313, end: 20170313

REACTIONS (7)
  - Corneal thinning [Unknown]
  - Product use issue [Unknown]
  - Eye pain [Unknown]
  - Anaesthetic complication [Unknown]
  - Therapy cessation [Unknown]
  - Incorrect drug administration duration [Unknown]
  - Intentional product misuse [Unknown]

NARRATIVE: CASE EVENT DATE: 20170313
